FAERS Safety Report 25701514 (Version 1)
Quarter: 2025Q3

REPORT INFORMATION
  Report Type: Spontaneous
  Country: US (occurrence: US)
  Receive Date: 20250819
  Receipt Date: 20250819
  Transmission Date: 20251021
  Serious: No
  Sender: MARIUS PHARMACEUTICALS
  Company Number: US-MARIUS PHARMACEUTICALS, LLC-2025US003902

PATIENT

DRUGS (6)
  1. KYZATREX [Suspect]
     Active Substance: TESTOSTERONE UNDECANOATE
     Indication: Blood testosterone decreased
     Dosage: 200 MG, 2 CAPSULES TWICE DAILY
     Route: 048
     Dates: start: 202503, end: 202503
  2. KYZATREX [Suspect]
     Active Substance: TESTOSTERONE UNDECANOATE
     Dosage: 200 MG, 1 CAPSULE TWICE DAILY
     Route: 048
     Dates: start: 202503, end: 2025
  3. KYZATREX [Suspect]
     Active Substance: TESTOSTERONE UNDECANOATE
     Dosage: 200 MG, 2 CAPSULES TWICE DAILY
     Route: 048
     Dates: start: 202505, end: 2025
  4. KYZATREX [Suspect]
     Active Substance: TESTOSTERONE UNDECANOATE
     Dosage: 200 MG, 1 CAPSULES TWICE DAILY
     Route: 048
     Dates: start: 202506
  5. VITAMINS [Concomitant]
     Active Substance: VITAMINS
  6. FISH OIL [Concomitant]
     Active Substance: FISH OIL

REACTIONS (6)
  - Asthenia [Unknown]
  - Blood testosterone decreased [Not Recovered/Not Resolved]
  - Sex hormone binding globulin decreased [Not Recovered/Not Resolved]
  - Hypertension [Recovered/Resolved]
  - Libido decreased [Unknown]
  - Blood testosterone free decreased [Not Recovered/Not Resolved]

NARRATIVE: CASE EVENT DATE: 20250101
